FAERS Safety Report 4829724-9 (Version None)
Quarter: 2005Q4

REPORT INFORMATION
  Report Type: 
  Country: None (occurrence: None)
  Receive Date: 20051116
  Receipt Date: 20050930
  Transmission Date: 20060501
  Serious: Yes (Hospitalization)
  Sender: FDA-Public Use
  Company Number: US-MERCK-0510USA01881

PATIENT
  Age: 60 Year
  Sex: Male
  Weight: 105 kg

DRUGS (4)
  1. VIOXX [Suspect]
     Indication: ARTHRITIS
     Route: 048
     Dates: start: 20001201, end: 20010608
  2. HUMULIN [Concomitant]
     Route: 058
  3. UNIVASC [Concomitant]
     Route: 065
  4. VIOXX [Suspect]
     Route: 048
     Dates: start: 20001201, end: 20010608

REACTIONS (3)
  - CARDIAC DISORDER [None]
  - CAROTID ARTERY DISEASE [None]
  - ISCHAEMIC STROKE [None]
